FAERS Safety Report 6899322-4 (Version None)
Quarter: 2010Q3

REPORT INFORMATION
  Report Type: 
  Country: None (occurrence: None)
  Receive Date: 20100802
  Receipt Date: 20100720
  Transmission Date: 20110219
  Serious: Yes (Life-Threatening)
  Sender: FDA-Public Use
  Company Number: US-MYLANLABS-2010S1012945

PATIENT
  Age: 58 Year
  Sex: Male

DRUGS (2)
  1. PRAMIPEXOLE DIHYDROCHLORIDE [Suspect]
     Indication: RESTLESS LEGS SYNDROME
     Route: 065
  2. PRAMIPEXOLE DIHYDROCHLORIDE [Suspect]
     Route: 065

REACTIONS (3)
  - DRUG DEPENDENCE [None]
  - LIBIDO INCREASED [None]
  - PATHOLOGICAL GAMBLING [None]
